FAERS Safety Report 17456207 (Version 3)
Quarter: 2020Q3

REPORT INFORMATION
  Report Type: Spontaneous
  Country: US (occurrence: US)
  Receive Date: 20200225
  Receipt Date: 20200827
  Transmission Date: 20201102
  Serious: Yes (Hospitalization, Other)
  Sender: FDA-Public Use
  Company Number: US-SA-2020SA047697

PATIENT

DRUGS (1)
  1. DUPIXENT [Suspect]
     Active Substance: DUPILUMAB
     Indication: ASTHMA
     Dosage: 300 MG, QOW
     Route: 058
     Dates: start: 20190912

REACTIONS (8)
  - Respiratory tract congestion [Not Recovered/Not Resolved]
  - Rhinorrhoea [Recovering/Resolving]
  - Sneezing [Not Recovered/Not Resolved]
  - Cough [Recovering/Resolving]
  - Cardiac failure congestive [Unknown]
  - Condition aggravated [Recovering/Resolving]
  - Condition aggravated [Unknown]
  - Chronic obstructive pulmonary disease [Not Recovered/Not Resolved]

NARRATIVE: CASE EVENT DATE: 202007
